FAERS Safety Report 5542367-7 (Version None)
Quarter: 2007Q4

REPORT INFORMATION
  Report Type: 
  Country: None (occurrence: None)
  Receive Date: 20071210
  Receipt Date: 20070326
  Transmission Date: 20080405
  Serious: No
  Sender: FDA-Public Use
  Company Number: US-AMGEN-KDL203112

PATIENT
  Sex: Male

DRUGS (1)
  1. ENBREL [Suspect]
     Indication: ANKYLOSING SPONDYLITIS
     Route: 058
     Dates: start: 20050831

REACTIONS (8)
  - ANKYLOSING SPONDYLITIS [None]
  - APHONIA [None]
  - DRY SKIN [None]
  - DYSPHONIA [None]
  - PARANASAL SINUS HYPERSECRETION [None]
  - PHARYNGITIS [None]
  - SINUSITIS [None]
  - SKIN IRRITATION [None]
